FAERS Safety Report 15075917 (Version 1)
Quarter: 2018Q2

REPORT INFORMATION
  Report Type: Spontaneous
  Country: US (occurrence: US)
  Receive Date: 20180627
  Receipt Date: 20180627
  Transmission Date: 20180711
  Serious: Yes (Other)
  Sender: FDA-Public Use
  Company Number: US-SA-2018SA166414

PATIENT
  Age: 64 Year
  Sex: Female
  Weight: 101.15 kg

DRUGS (5)
  1. TAXOTERE [Suspect]
     Active Substance: DOCETAXEL
     Dosage: 150 MG, QW
     Route: 042
     Dates: start: 20090430, end: 20090430
  2. TAXOTERE [Suspect]
     Active Substance: DOCETAXEL
     Dosage: 150 UNK
     Route: 042
     Dates: start: 20090521, end: 20090521
  3. PARAPLATIN [Concomitant]
     Active Substance: CARBOPLATIN
     Route: 042
  4. LISINOPRIL. [Concomitant]
     Active Substance: LISINOPRIL
     Route: 042
  5. COREG [Concomitant]
     Active Substance: CARVEDILOL
     Route: 042

REACTIONS (2)
  - Alopecia [Recovering/Resolving]
  - Psychological trauma [Unknown]
